FAERS Safety Report 12384090 (Version 1)
Quarter: 2016Q2

REPORT INFORMATION
  Report Type: Spontaneous
  Country: US (occurrence: None)
  Receive Date: 20160518
  Receipt Date: 20160518
  Transmission Date: 20160815
  Serious: No
  Sender: FDA-Public Use
  Company Number: None

PATIENT
  Sex: Female

DRUGS (1)
  1. LEVAQUIN [Suspect]
     Active Substance: LEVOFLOXACIN
     Indication: URINARY TRACT INFECTION
     Dosage: EVERY 12 HOURS
     Route: 048
     Dates: start: 20160101

REACTIONS (3)
  - Pain in extremity [None]
  - Nightmare [None]
  - Palpitations [None]

NARRATIVE: CASE EVENT DATE: 20160105
